FAERS Safety Report 18266386 (Version 1)
Quarter: 2020Q3

REPORT INFORMATION
  Report Type: Spontaneous
  Country: US (occurrence: US)
  Receive Date: 20200915
  Receipt Date: 20200915
  Transmission Date: 20201103
  Serious: No
  Sender: FDA-Public Use
  Company Number: US-AUROBINDO-AUR-APL-2020-015942

PATIENT
  Sex: Female

DRUGS (5)
  1. PAROXETINE TABLETS USP 30MG [Suspect]
     Active Substance: PAROXETINE
     Indication: ANXIETY
  2. AMLODIPINE [Concomitant]
     Active Substance: AMLODIPINE BESYLATE
     Indication: PRODUCT USED FOR UNKNOWN INDICATION
     Dosage: UNK
     Route: 065
  3. PAROXETINE TABLETS USP 30MG [Suspect]
     Active Substance: PAROXETINE
     Indication: NERVOUSNESS
     Dosage: 1 DOSAGE FORM, ONCE A DAY IN MORNING
     Route: 065
  4. TACROLIMUS. [Concomitant]
     Active Substance: TACROLIMUS
     Indication: PRODUCT USED FOR UNKNOWN INDICATION
     Dosage: UNK
     Route: 065
  5. METOPROLOL. [Concomitant]
     Active Substance: METOPROLOL
     Indication: HYPERTENSION
     Dosage: UNK
     Route: 065

REACTIONS (1)
  - Ocular discomfort [Unknown]
